FAERS Safety Report 6008855-4 (Version None)
Quarter: 2008Q4

REPORT INFORMATION
  Report Type: 
  Country: None (occurrence: None)
  Receive Date: 20081217
  Receipt Date: 20081217
  Transmission Date: 20090506
  Serious: Yes (Hospitalization)
  Sender: FDA-Public Use
  Company Number: None

PATIENT
  Sex: Female
  Weight: 136 kg

DRUGS (1)
  1. CISPLATIN [Suspect]
     Dosage: 420 MG
     Dates: start: 20081202, end: 20081202

REACTIONS (4)
  - CHEST PAIN [None]
  - DYSPNOEA [None]
  - NEUTROPENIA [None]
  - PULMONARY HYPERTENSION [None]
